FAERS Safety Report 7414747-6 (Version None)
Quarter: 2011Q2

REPORT INFORMATION
  Report Type: 
  Country: None (occurrence: None)
  Receive Date: 20110414
  Receipt Date: 20110412
  Transmission Date: 20111010
  Serious: Yes (Death)
  Sender: FDA-Public Use
  Company Number: AU-SANOFI-AVENTIS-2011SA021892

PATIENT
  Age: 49 Year
  Sex: Male
  Weight: 160 kg

DRUGS (2)
  1. ASPIRIN [Concomitant]
  2. CLEXANE [Suspect]
     Dates: start: 20080827, end: 20080827

REACTIONS (2)
  - DRUG PRESCRIBING ERROR [None]
  - COMPARTMENT SYNDROME [None]
